FAERS Safety Report 7131229-X (Version None)
Quarter: 2010Q4

REPORT INFORMATION
  Report Type: 
  Country: None (occurrence: None)
  Receive Date: 20101201
  Receipt Date: 20101126
  Transmission Date: 20110411
  Serious: Yes (Hospitalization)
  Sender: FDA-Public Use
  Company Number: DE-MERCK-1011DEU00048

PATIENT
  Age: 78 Year
  Sex: Female

DRUGS (4)
  1. VYTORIN [Suspect]
     Indication: HYPERLIPIDAEMIA
     Route: 048
     Dates: start: 20090401, end: 20100901
  2. TORSEMIDE [Concomitant]
     Route: 048
  3. ASPIRIN [Concomitant]
     Route: 048
  4. IRBESARTAN [Concomitant]
     Route: 048

REACTIONS (4)
  - CHOLESTASIS [None]
  - INJECTION SITE ERYTHEMA [None]
  - PANCREATITIS ACUTE [None]
  - WRONG TECHNIQUE IN DRUG USAGE PROCESS [None]
